FAERS Safety Report 6447383-9 (Version None)
Quarter: 2009Q4

REPORT INFORMATION
  Report Type: 
  Country: None (occurrence: None)
  Receive Date: 20091119
  Receipt Date: 20091104
  Transmission Date: 20100525
  Serious: Yes (Other)
  Sender: FDA-Public Use
  Company Number: MX-ELI_LILLY_AND_COMPANY-MX200911001504

PATIENT
  Age: 67 Year
  Sex: Male
  Weight: 76 kg

DRUGS (10)
  1. HUMULIN 70/30 [Suspect]
     Indication: DIABETES MELLITUS
     Dosage: 26 IU, EACH MORNING
     Route: 058
     Dates: end: 20091001
  2. HUMULIN 70/30 [Suspect]
     Dosage: 16 IU, EACH EVENING
     Route: 058
     Dates: start: 20040101
  3. HUMULIN 70/30 [Suspect]
     Dosage: 28 IU, EACH MORNING
     Route: 058
     Dates: start: 20091001, end: 20091001
  4. HUMULIN 70/30 [Suspect]
     Dosage: 26 IU, EACH MORNING
     Route: 058
     Dates: start: 20091001
  5. PROPAFENONE HCL [Concomitant]
     Indication: ISCHAEMIA
     Dosage: 100 MG, EACH MORNING
     Route: 065
  6. PROPAFENONE HCL [Concomitant]
     Dosage: 100 MG, EACH EVENING
     Route: 065
  7. METOPROLOL [Concomitant]
     Indication: BLOOD PRESSURE
     Dosage: UNK, EACH MORNING
     Route: 065
  8. METOPROLOL [Concomitant]
     Dosage: UNK, EACH EVENING
     Route: 065
  9. ENALAPRIL MALEATE [Concomitant]
     Indication: BLOOD PRESSURE
     Dosage: 10 MG, DAILY (1/D)
     Route: 065
  10. ACETYLSALICYLIC ACID [Concomitant]
     Indication: PROPHYLAXIS
     Dosage: 150 MG, DAILY (1/D)
     Route: 065

REACTIONS (4)
  - EYE PAIN [None]
  - GALLBLADDER OPERATION [None]
  - HYPERGLYCAEMIA [None]
  - UMBILICAL HERNIA REPAIR [None]
